FAERS Safety Report 9071442 (Version 2)
Quarter: 2013Q2

REPORT INFORMATION
  Report Type: Spontaneous
  Country: DE (occurrence: DE)
  Receive Date: 20130129
  Receipt Date: 20130430
  Transmission Date: 20140414
  Serious: Yes (Hospitalization)
  Sender: FDA-Public Use
  Company Number: DE-BAYER-2013-009732

PATIENT
  Age: 47 Year
  Sex: Female
  Weight: 83 kg

DRUGS (1)
  1. BETAFERON [Suspect]
     Indication: MULTIPLE SCLEROSIS
     Dosage: 250 ?G/ML, UNK
     Dates: start: 201104

REACTIONS (1)
  - Breast cancer [None]
